FAERS Safety Report 19099734 (Version 1)
Quarter: 2021Q2

REPORT INFORMATION
  Report Type: Spontaneous
  Country: AT (occurrence: AT)
  Receive Date: 20210407
  Receipt Date: 20210407
  Transmission Date: 20210717
  Serious: Yes (Hospitalization)
  Sender: FDA-Public Use
  Company Number: AT-LUPIN PHARMACEUTICALS INC.-2021-04149

PATIENT
  Age: 67 Year
  Sex: Male

DRUGS (18)
  1. GABAPENTIN. [Suspect]
     Active Substance: GABAPENTIN
     Indication: TRIGEMINAL NEURALGIA
  2. GALCANEZUMAB [Concomitant]
     Active Substance: GALCANEZUMAB
     Indication: HEADACHE
     Dosage: 120 MILLIGRAM, 4 WEEKS
     Route: 065
  3. GABAPENTIN. [Suspect]
     Active Substance: GABAPENTIN
     Indication: HEADACHE
     Dosage: 1800 MILLIGRAM, QD (STOPPED)
     Route: 065
  4. ZOLMITRIPTAN. [Suspect]
     Active Substance: ZOLMITRIPTAN
     Indication: HEADACHE
  5. ERENUMAB [Concomitant]
     Active Substance: ERENUMAB
     Indication: TRIGEMINAL NEURALGIA
     Dosage: UNK?UNKNOWN INITIAL DOSE
     Route: 065
  6. INDOMETHACIN [INDOMETACIN SODIUM] [Suspect]
     Active Substance: INDOMETHACIN SODIUM
     Indication: TRIGEMINAL NEURALGIA
     Dosage: 150 MILLIGRAM, QD (STOPPED)
     Route: 065
  7. CARBAMAZEPINE. [Suspect]
     Active Substance: CARBAMAZEPINE
     Indication: HEADACHE
  8. GALCANEZUMAB [Concomitant]
     Active Substance: GALCANEZUMAB
     Indication: TRIGEMINAL NEURALGIA
     Dosage: 240 MILLIGRAM, INITIAL LOADING DOSE
     Route: 065
  9. VERAPAMIL [Suspect]
     Active Substance: VERAPAMIL HYDROCHLORIDE
     Indication: HEADACHE
  10. TOPIRAMATE. [Concomitant]
     Active Substance: TOPIRAMATE
     Indication: TRIGEMINAL NEURALGIA
     Dosage: UNK
     Route: 065
  11. INDOMETHACIN [INDOMETACIN SODIUM] [Suspect]
     Active Substance: INDOMETHACIN SODIUM
     Indication: HEADACHE
  12. LAMOTRIGINE. [Suspect]
     Active Substance: LAMOTRIGINE
     Indication: TRIGEMINAL NEURALGIA
     Dosage: UNK (STOPPED)
     Route: 065
  13. CARBAMAZEPINE. [Suspect]
     Active Substance: CARBAMAZEPINE
     Indication: TRIGEMINAL NEURALGIA
     Dosage: 600 MILLIGRAM, QD (STOPPED)
     Route: 065
  14. VERAPAMIL [Suspect]
     Active Substance: VERAPAMIL HYDROCHLORIDE
     Indication: TRIGEMINAL NEURALGIA
     Dosage: UNK (STOPPED)
     Route: 065
  15. LAMOTRIGINE. [Suspect]
     Active Substance: LAMOTRIGINE
     Indication: HEADACHE
  16. ZOLMITRIPTAN. [Suspect]
     Active Substance: ZOLMITRIPTAN
     Indication: TRIGEMINAL NEURALGIA
     Dosage: UNK (STOPPED)
     Route: 065
  17. ERENUMAB [Concomitant]
     Active Substance: ERENUMAB
     Indication: HEADACHE
     Dosage: 140 MILLIGRAM?FOUR WEEKS FOLLOWING INITIAL APPLICATION
     Route: 065
  18. TOPIRAMATE. [Concomitant]
     Active Substance: TOPIRAMATE
     Indication: HEADACHE
     Dosage: 200 MILLIGRAM, QD (TITRATED UP TO 200 MG PER DAY)
     Route: 065
     Dates: start: 201906

REACTIONS (1)
  - Drug ineffective [Unknown]
